FAERS Safety Report 4748078-X (Version None)
Quarter: 2005Q3

REPORT INFORMATION
  Report Type: 
  Country: None (occurrence: None)
  Receive Date: 20050818
  Receipt Date: 20050812
  Transmission Date: 20060218
  Serious: Yes (Hospitalization)
  Sender: FDA-Public Use
  Company Number: FR-GLAXOSMITHKLINE-B0390706A

PATIENT
  Age: 9 Month
  Sex: Male

DRUGS (1)
  1. AUGMENTIN '125' [Suspect]
     Route: 048
     Dates: start: 20050624, end: 20050702

REACTIONS (3)
  - DYSPNOEA [None]
  - FACE OEDEMA [None]
  - RASH GENERALISED [None]
